FAERS Safety Report 20180097 (Version 1)
Quarter: 2021Q4

REPORT INFORMATION
  Report Type: Spontaneous
  Country: US (occurrence: US)
  Receive Date: 20211214
  Receipt Date: 20211214
  Transmission Date: 20220303
  Serious: Yes (Other)
  Sender: FDA-Public Use
  Company Number: US-STRIDES ARCOLAB LIMITED-2021SP029593

PATIENT
  Age: 79 Year
  Sex: Male

DRUGS (8)
  1. PREDNISOLONE [Suspect]
     Active Substance: PREDNISOLONE
     Indication: Large granular lymphocytosis
     Dosage: 60 MILLIGRAM PER DAY,THIS WAS LATER TAPERED OVER 8 WEEKS
     Route: 065
  2. PREDNISOLONE [Suspect]
     Active Substance: PREDNISOLONE
     Dosage: 40 MILLIGRAMPER DAY,A SHORT COURSE WAS GIVEN, LATER TAPERED OVER 14 DAYS
     Route: 065
  3. CYCLOSPORINE [Suspect]
     Active Substance: CYCLOSPORINE
     Indication: Large granular lymphocytosis
     Dosage: CICLOSPORIN 2 MG/KG DAILY IN DIVIDED DOSES
     Route: 065
  4. TACROLIMUS [Suspect]
     Active Substance: TACROLIMUS
     Indication: Large granular lymphocytosis
     Dosage: 4 MG DAILY IN DIVIDED DOSES
     Route: 065
  5. EPOETIN ALFA [Suspect]
     Active Substance: ERYTHROPOIETIN
     Indication: Anaemia
     Dosage: 60000 BI WEEKLY
     Route: 065
  6. METHOTREXATE [Suspect]
     Active Substance: METHOTREXATE
     Indication: Large granular lymphocytosis
     Dosage: 15 MILLIGRAM, ONCE A WEEK
     Route: 065
  7. METHOTREXATE [Suspect]
     Active Substance: METHOTREXATE
     Dosage: 10 MILLIGRAM, ONCE A WEEK
     Route: 065
  8. VORINOSTAT [Concomitant]
     Active Substance: VORINOSTAT
     Indication: Large granular lymphocytosis
     Dosage: 400 MILLIGRAM PER DAY
     Route: 065

REACTIONS (2)
  - Nephropathy toxic [Unknown]
  - Drug ineffective [Unknown]
